FAERS Safety Report 11132522 (Version 1)
Quarter: 2015Q2

REPORT INFORMATION
  Report Type: Spontaneous
  Country: DE (occurrence: DE)
  Receive Date: 20150522
  Receipt Date: 20150522
  Transmission Date: 20150821
  Serious: Yes (Hospitalization)
  Sender: FDA-Public Use
  Company Number: DE-INTERMUNE, INC.-201505IM016178

PATIENT
  Sex: Male
  Weight: 66 kg

DRUGS (9)
  1. ESBRIET [Suspect]
     Active Substance: PIRFENIDONE
     Dosage: 2403 MG
     Route: 048
  2. PRAVASTATIN [Concomitant]
     Active Substance: PRAVASTATIN\PRAVASTATIN SODIUM
  3. SPIRONOLACTON [Concomitant]
     Active Substance: SPIRONOLACTONE
  4. BISOPROLOL [Concomitant]
     Active Substance: BISOPROLOL
  5. ESBRIET [Suspect]
     Active Substance: PIRFENIDONE
     Indication: PULMONARY FIBROSIS
     Route: 048
  6. PANTIZOL [Concomitant]
  7. EZETROL [Concomitant]
     Active Substance: EZETIMIBE
  8. MARCUMAR [Concomitant]
     Active Substance: PHENPROCOUMON
  9. TOREM [Concomitant]
     Active Substance: TORSEMIDE

REACTIONS (1)
  - Colitis erosive [Unknown]
